FAERS Safety Report 4814249-7 (Version None)
Quarter: 2005Q4

REPORT INFORMATION
  Report Type: 
  Country: None (occurrence: None)
  Receive Date: 20051026
  Receipt Date: 20051010
  Transmission Date: 20060501
  Serious: Yes (Other)
  Sender: FDA-Public Use
  Company Number: USA0510110506

PATIENT
  Age: 51 Year
  Sex: Female

DRUGS (5)
  1. STRATTERA [Suspect]
     Indication: DISTURBANCE IN ATTENTION
     Dosage: 25 MG/2 DAY
     Dates: start: 20031010
  2. ESTRADIOL INJ [Concomitant]
  3. PROMETRIUM [Concomitant]
  4. SINGULAIR [Concomitant]
  5. MIDODRINE HCL [Concomitant]

REACTIONS (8)
  - ABNORMAL BEHAVIOUR [None]
  - CONDITION AGGRAVATED [None]
  - CRYING [None]
  - DEPRESSION [None]
  - DRUG INEFFECTIVE [None]
  - EMOTIONAL DISORDER [None]
  - INTENTIONAL SELF-INJURY [None]
  - SELF INJURIOUS BEHAVIOUR [None]
